FAERS Safety Report 6225360-0 (Version None)
Quarter: 2009Q2

REPORT INFORMATION
  Report Type: 
  Country: None (occurrence: None)
  Receive Date: 20090612
  Receipt Date: 20090506
  Transmission Date: 20091009
  Serious: No
  Sender: FDA-Public Use
  Company Number: US-ABBOTT-09P-163-0568439-00

PATIENT
  Sex: Female

DRUGS (3)
  1. HUMIRA [Suspect]
     Indication: CROHN'S DISEASE
     Dates: start: 20070916, end: 20090414
  2. HUMIRA [Suspect]
  3. ORAL CONTRACEPTIVE NOS [Concomitant]
     Indication: DRUG USE FOR UNKNOWN INDICATION
     Dosage: PILLS
     Route: 048

REACTIONS (6)
  - ABDOMINAL PAIN UPPER [None]
  - ABSCESS INTESTINAL [None]
  - INJECTION SITE REACTION [None]
  - PRURITUS [None]
  - RASH [None]
  - URTICARIA [None]
